FAERS Safety Report 5724216-7 (Version None)
Quarter: 2008Q2

REPORT INFORMATION
  Report Type: 
  Country: None (occurrence: None)
  Receive Date: 20080430
  Receipt Date: 20080416
  Transmission Date: 20081010
  Serious: Yes (Death, Life-Threatening, Hospitalization, Other)
  Sender: FDA-Public Use
  Company Number: CY-MERCK-0804USA03560

PATIENT
  Age: 53 Year
  Sex: Male
  Weight: 118 kg

DRUGS (6)
  1. VYTORIN [Suspect]
     Indication: HYPERCHOLESTEROLAEMIA
     Route: 048
     Dates: start: 20080319, end: 20080319
  2. METFORMIN [Concomitant]
     Route: 065
     Dates: start: 20000101, end: 20080408
  3. ROSIGLITAZONE MALEATE [Concomitant]
     Route: 065
     Dates: start: 20000101, end: 20080408
  4. JANUVIA [Concomitant]
     Route: 065
     Dates: start: 20070101, end: 20080408
  5. ZOCOR [Concomitant]
     Indication: HYPERCHOLESTEROLAEMIA
     Route: 065
     Dates: start: 20000101, end: 20080319
  6. ZETIA [Concomitant]
     Indication: HYPERCHOLESTEROLAEMIA
     Route: 065
     Dates: start: 20050601, end: 20080319

REACTIONS (5)
  - CARDIOMEGALY [None]
  - CHOLECYSTITIS ACUTE [None]
  - DISSEMINATED INTRAVASCULAR COAGULATION [None]
  - HEPATITIS VIRAL [None]
  - HEPATOMEGALY [None]
